FAERS Safety Report 8073891-3 (Version None)
Quarter: 2012Q1

REPORT INFORMATION
  Report Type: 
  Country: None (occurrence: None)
  Receive Date: 20120126
  Receipt Date: 20120123
  Transmission Date: 20120608
  Serious: Yes (Death, Hospitalization)
  Sender: FDA-Public Use
  Company Number: US-CELGENEUS-163-50794-12012253

PATIENT
  Age: 65 Year
  Sex: Male
  Weight: 69.961 kg

DRUGS (6)
  1. ZOLINZA [Suspect]
     Dosage: 400 MILLIGRAM
     Route: 048
     Dates: start: 20110823
  2. MYLOTARG [Suspect]
     Dosage: 3 MILLIGRAM/SQ. METER
     Route: 011
     Dates: start: 20111025, end: 20111031
  3. ZOLINZA [Suspect]
     Dosage: 400 MILLIGRAM
     Route: 048
     Dates: start: 20111025, end: 20111102
  4. VIDAZA [Suspect]
     Dosage: 75 MILLIGRAM/SQ. METER
     Dates: start: 20110823
  5. MYLOTARG [Suspect]
     Dosage: 3 MILLIGRAM/SQ. METER
     Route: 041
     Dates: start: 20110823
  6. VIDAZA [Suspect]
     Dosage: 75 MILLIGRAM/SQ. METER
     Dates: start: 20111025, end: 20111030

REACTIONS (4)
  - SEPSIS [None]
  - PNEUMONITIS [None]
  - RESPIRATORY FAILURE [None]
  - FEBRILE NEUTROPENIA [None]
